FAERS Safety Report 10314022 (Version 2)
Quarter: 2014Q3

REPORT INFORMATION
  Report Type: Spontaneous
  Country: FR (occurrence: FR)
  Receive Date: 20140718
  Receipt Date: 20140728
  Transmission Date: 20150326
  Serious: Yes (Other)
  Sender: FDA-Public Use
  Company Number: FR-WATSON-2014-15400

PATIENT
  Sex: Female

DRUGS (11)
  1. RISPERIDONE. [Concomitant]
     Active Substance: RISPERIDONE
     Indication: SCHIZOPHRENIA
     Dosage: 12 MG, DAILY
     Route: 064
  2. CHLORPROMAZINE [Concomitant]
     Active Substance: CHLORPROMAZINE
     Dosage: 600 MG, DAILY
     Route: 064
  3. SUCCINYLCHOLINE [Concomitant]
     Active Substance: SUCCINYLCHOLINE
     Indication: INDUCTION OF ANAESTHESIA
     Dosage: 100 MG, SINGLE
     Route: 064
  4. THIOPENTAL [Concomitant]
     Active Substance: THIOPENTAL
     Indication: INDUCTION OF ANAESTHESIA
     Dosage: 500 MG, SINGLE
     Route: 064
  5. LOXAPINE (WATSON LABORATORIES) [Suspect]
     Active Substance: LOXAPINE SUCCINATE
     Indication: SCHIZOPHRENIA
     Dosage: 500 MG, DAILY
     Route: 064
  6. SEVOFLURANE. [Concomitant]
     Active Substance: SEVOFLURANE
     Indication: MAINTENANCE OF ANAESTHESIA
     Dosage: UNK
     Route: 064
  7. OLANZAPINE. [Concomitant]
     Active Substance: OLANZAPINE
     Indication: SCHIZOPHRENIA
     Dosage: 20 MG, DAILY
     Route: 064
  8. OXAZEPAM. [Concomitant]
     Active Substance: OXAZEPAM
     Indication: SCHIZOPHRENIA
     Dosage: 30 MG, DAILY
     Route: 064
  9. NITROUS OXIDE. [Concomitant]
     Active Substance: NITROUS OXIDE
     Indication: MAINTENANCE OF ANAESTHESIA
     Dosage: UNK
     Route: 064
  10. CHLORPROMAZINE [Concomitant]
     Active Substance: CHLORPROMAZINE
     Indication: SCHIZOPHRENIA
     Dosage: 200 MG, DAILY
     Route: 064
  11. HYDROXYZINE [Concomitant]
     Active Substance: HYDROXYZINE\HYDROXYZINE HYDROCHLORIDE
     Indication: SCHIZOPHRENIA
     Dosage: 300 MG, DAILY
     Route: 064

REACTIONS (2)
  - Antipsychotic drug level increased [Unknown]
  - Foetal exposure during pregnancy [Unknown]
